FAERS Safety Report 7402896-8 (Version None)
Quarter: 2011Q2

REPORT INFORMATION
  Report Type: 
  Country: None (occurrence: None)
  Receive Date: 20110401
  Receipt Date: 20110329
  Transmission Date: 20111010
  Serious: No
  Sender: FDA-Public Use
  Company Number: 2011-00141

PATIENT
  Age: 85 Year
  Sex: Male
  Weight: 72.5755 kg

DRUGS (3)
  1. ACCUPRIL [Concomitant]
  2. LOPRESSOR [Concomitant]
  3. ZICAM COLD REMEDY ORAL MIST [Suspect]
     Dosage: BID X 2 DAYS
     Dates: start: 20110325, end: 20110326

REACTIONS (1)
  - AGEUSIA [None]
